FAERS Safety Report 25724954 (Version 1)
Quarter: 2025Q3

REPORT INFORMATION
  Report Type: Spontaneous
  Country: US (occurrence: US)
  Receive Date: 20250826
  Receipt Date: 20250826
  Transmission Date: 20251021
  Serious: No
  Sender: AMNEAL
  Company Number: US-AMNEAL PHARMACEUTICALS-2025-AMRX-02363

PATIENT
  Age: 75 Year
  Sex: Female

DRUGS (1)
  1. CREXONT [Suspect]
     Active Substance: CARBIDOPA\LEVODOPA
     Indication: Parkinson^s disease
     Dosage: 87.5/350MG, 2 CAPSULES, 3 /DAY
     Route: 048
     Dates: start: 20250423

REACTIONS (5)
  - Freezing phenomenon [Recovered/Resolved]
  - Activities of daily living decreased [Recovered/Resolved]
  - Social fear [Recovered/Resolved]
  - Withdrawal syndrome [Recovered/Resolved]
  - Product use issue [Unknown]

NARRATIVE: CASE EVENT DATE: 20250523
